FAERS Safety Report 18484222 (Version 1)
Quarter: 2020Q4

REPORT INFORMATION
  Report Type: Spontaneous
  Country: US (occurrence: US)
  Receive Date: 20201110
  Receipt Date: 20201110
  Transmission Date: 20210114
  Serious: Yes (Other)
  Sender: FDA-Public Use
  Company Number: US-ROCHE-2706183

PATIENT
  Age: 52 Year
  Sex: Male
  Weight: 118.04 kg

DRUGS (11)
  1. HYDROCODONE BITARTRATE AND ACETAMINOPHEN [Concomitant]
     Active Substance: ACETAMINOPHEN\HYDROCODONE BITARTRATE
     Indication: NECK PAIN
     Dosage: TOOK ONE TABLET 4-6 TIMES A DAY PRN
     Route: 048
     Dates: start: 2019
  2. LIALDA [Concomitant]
     Active Substance: MESALAMINE
     Dosage: TAKES 2 TABLETS TWICE A DAY
     Route: 048
     Dates: start: 201801
  3. LANSOPRAZOLE. [Concomitant]
     Active Substance: LANSOPRAZOLE
     Indication: GASTROOESOPHAGEAL REFLUX DISEASE
     Route: 048
     Dates: start: 2019
  4. LIDOCAINE. [Concomitant]
     Active Substance: LIDOCAINE
     Indication: NECK PAIN
     Dosage: APPLIES UP TO 3 PATCHES PRN LEAVE ON FOR 12 HOURS
     Route: 061
     Dates: start: 2019
  5. TRAMADOL. [Concomitant]
     Active Substance: TRAMADOL
     Indication: NECK PAIN
     Dosage: 1-2 TAB A DAY PRN FOR ABOUT A YEAR
     Route: 048
     Dates: start: 2019, end: 2019
  6. EPINEPHRINE. [Concomitant]
     Active Substance: EPINEPHRINE
     Indication: ALLERGY TO ARTHROPOD STING
  7. DULOXETINE. [Concomitant]
     Active Substance: DULOXETINE
     Indication: ANXIETY
     Dosage: TAKES ONE CAPSULE TWICE A DAY
     Route: 048
     Dates: start: 20190109
  8. OCREVUS [Suspect]
     Active Substance: OCRELIZUMAB
     Indication: MULTIPLE SCLEROSIS
     Dosage: SUBSEQUENT DOSES 19/MAR/2018, 2/APR/2018, 1/OCT/2018, 1/APR/2019, 7/OCT/2019, AND 27/APR/2020.
     Route: 042
     Dates: start: 20180319
  9. BACLOFEN. [Concomitant]
     Active Substance: BACLOFEN
     Indication: MUSCLE RELAXANT THERAPY
     Dosage: TAKES ONE TABLET 2-3 TIMES A DAY
     Route: 048
     Dates: start: 2019
  10. OCREVUS [Suspect]
     Active Substance: OCRELIZUMAB
     Dosage: MOST RECENT DOSE 05/OCT/2020
     Route: 042
  11. VENTOLIN [Concomitant]
     Active Substance: ALBUTEROL SULFATE
     Indication: ASTHMA
     Route: 048

REACTIONS (8)
  - Aphasia [Not Recovered/Not Resolved]
  - Magnetic resonance imaging brain abnormal [Unknown]
  - Weight increased [Not Recovered/Not Resolved]
  - Mental impairment [Not Recovered/Not Resolved]
  - Intentional product use issue [Unknown]
  - Paraesthesia [Not Recovered/Not Resolved]
  - Off label use [Unknown]
  - Tremor [Not Recovered/Not Resolved]

NARRATIVE: CASE EVENT DATE: 20180916
